FAERS Safety Report 4877335-1 (Version None)
Quarter: 2006Q1

REPORT INFORMATION
  Report Type: 
  Country: None (occurrence: None)
  Receive Date: 20060111
  Receipt Date: 20051213
  Transmission Date: 20060701
  Serious: Yes (Hospitalization)
  Sender: FDA-Public Use
  Company Number: US-AMGEN-US160762

PATIENT
  Sex: Female
  Weight: 42 kg

DRUGS (11)
  1. ARANESP [Suspect]
     Indication: DIALYSIS
     Dates: start: 20050404
  2. CYTOXAN [Concomitant]
     Route: 048
  3. TUMS [Concomitant]
  4. LANTUS [Concomitant]
  5. HUMULIN R [Concomitant]
  6. PHENOBARBITAL [Concomitant]
  7. SENSIPAR [Concomitant]
     Route: 048
  8. SANDIMMUNE [Concomitant]
     Route: 048
  9. SYNTHROID [Concomitant]
     Route: 048
  10. NEPHRO-CAPS [Concomitant]
     Route: 048
  11. PHENOBARBITAL [Concomitant]

REACTIONS (4)
  - ANAEMIA [None]
  - GRAFT INFECTION [None]
  - PLATELET COUNT DECREASED [None]
  - WOUND [None]
